FAERS Safety Report 16362955 (Version 4)
Quarter: 2019Q3

REPORT INFORMATION
  Report Type: Spontaneous
  Country: JP (occurrence: JP)
  Receive Date: 20190528
  Receipt Date: 20190724
  Transmission Date: 20191004
  Serious: Yes (Death, Life-Threatening)
  Sender: FDA-Public Use
  Company Number: JP-JNJFOC-20190534294

PATIENT
  Age: 42 Year
  Sex: Male

DRUGS (28)
  1. XEPLION [Suspect]
     Active Substance: PALIPERIDONE PALMITATE
     Route: 030
     Dates: start: 20160204, end: 20160204
  2. XEPLION [Suspect]
     Active Substance: PALIPERIDONE PALMITATE
     Route: 030
     Dates: start: 20160307, end: 20160307
  3. SILECE [Concomitant]
     Active Substance: FLUNITRAZEPAM
     Route: 065
  4. SILECE [Concomitant]
     Active Substance: FLUNITRAZEPAM
     Dosage: AT BEDTIME
     Route: 048
  5. ZYPREXA [Concomitant]
     Active Substance: OLANZAPINE
     Indication: SCHIZOPHRENIA
     Route: 048
     Dates: start: 20151112, end: 20160203
  6. ZYPREXA [Concomitant]
     Active Substance: OLANZAPINE
     Route: 048
     Dates: start: 20160506, end: 20160519
  7. ZYPREXA [Concomitant]
     Active Substance: OLANZAPINE
     Dosage: AT BEDTIME
     Route: 048
  8. LEVOTOMIN [Concomitant]
     Active Substance: LEVOMEPROMAZINE
     Route: 048
     Dates: start: 20160506, end: 20160519
  9. LEVOTOMIN [Concomitant]
     Active Substance: LEVOMEPROMAZINE
     Route: 048
     Dates: start: 20160520
  10. ZYLORIC [Concomitant]
     Active Substance: ALLOPURINOL
     Indication: HYPERURICAEMIA
     Route: 048
     Dates: start: 20160520
  11. BENZALIN [Concomitant]
     Dosage: AT BEDTIME
     Route: 048
  12. XEPLION [Suspect]
     Active Substance: PALIPERIDONE PALMITATE
     Route: 030
     Dates: start: 20151210, end: 20151210
  13. XEPLION [Suspect]
     Active Substance: PALIPERIDONE PALMITATE
     Route: 030
     Dates: start: 20160620, end: 20160620
  14. ZYPREXA [Concomitant]
     Active Substance: OLANZAPINE
     Route: 048
     Dates: start: 20160520
  15. XEPLION [Suspect]
     Active Substance: PALIPERIDONE PALMITATE
     Indication: SCHIZOPHRENIA
     Route: 030
     Dates: start: 20151105, end: 20151105
  16. ZYPREXA [Concomitant]
     Active Substance: OLANZAPINE
     Route: 048
     Dates: start: 20160307, end: 20160505
  17. XEPLION [Suspect]
     Active Substance: PALIPERIDONE PALMITATE
     Route: 030
     Dates: start: 20160405, end: 20160405
  18. LEVOTOMIN [Concomitant]
     Active Substance: LEVOMEPROMAZINE
     Dosage: AT BEDTIME
     Route: 048
  19. XEPLION [Suspect]
     Active Substance: PALIPERIDONE PALMITATE
     Route: 030
     Dates: start: 20160520, end: 20160520
  20. XEPLION [Suspect]
     Active Substance: PALIPERIDONE PALMITATE
     Route: 030
     Dates: start: 20160720, end: 20160720
  21. SILECE [Concomitant]
     Active Substance: FLUNITRAZEPAM
     Indication: SCHIZOPHRENIA
     Route: 048
  22. ZYLORIC [Concomitant]
     Active Substance: ALLOPURINOL
     Dosage: AFTER DINNER
     Route: 048
  23. XEPLION [Suspect]
     Active Substance: PALIPERIDONE PALMITATE
     Route: 030
     Dates: start: 20151112, end: 20151112
  24. XEPLION [Suspect]
     Active Substance: PALIPERIDONE PALMITATE
     Route: 030
     Dates: start: 20160107, end: 20160107
  25. BENZALIN [Concomitant]
     Indication: INSOMNIA
     Route: 048
     Dates: start: 20151210
  26. XEPLION [Suspect]
     Active Substance: PALIPERIDONE PALMITATE
     Route: 030
     Dates: start: 20160506, end: 20160506
  27. MEILAX [Concomitant]
     Active Substance: ETHYL LOFLAZEPATE
     Indication: SCHIZOPHRENIA
     Route: 048
     Dates: end: 20151210
  28. LEVOTOMIN [Concomitant]
     Active Substance: LEVOMEPROMAZINE
     Indication: SCHIZOPHRENIA
     Route: 048
     Dates: start: 20160307, end: 20160505

REACTIONS (1)
  - Pulmonary embolism [Fatal]

NARRATIVE: CASE EVENT DATE: 20160727
